FAERS Safety Report 5744532-2 (Version None)
Quarter: 2008Q2

REPORT INFORMATION
  Report Type: 
  Country: None (occurrence: None)
  Receive Date: 20080516
  Receipt Date: 20080430
  Transmission Date: 20081010
  Serious: Yes (Other)
  Sender: FDA-Public Use
  Company Number: 2008AL002969

PATIENT
  Sex: Male

DRUGS (1)
  1. DIGOXIN [Suspect]
     Dosage: PO
     Route: 048

REACTIONS (6)
  - ABASIA [None]
  - DIZZINESS [None]
  - HEART RATE DECREASED [None]
  - MENTAL IMPAIRMENT [None]
  - PARALYSIS [None]
  - SPEECH DISORDER [None]
